FAERS Safety Report 4406582-8 (Version None)
Quarter: 2004Q3

REPORT INFORMATION
  Report Type: 
  Country: None (occurrence: None)
  Receive Date: 20040723
  Receipt Date: 20040504
  Transmission Date: 20050211
  Serious: Yes (Other)
  Sender: FDA-Public Use
  Company Number: FR-GLAXOSMITHKLINE-B0334030A

PATIENT
  Age: 32 Year
  Sex: Female
  Weight: 87 kg

DRUGS (5)
  1. LAMICTAL [Suspect]
     Indication: EPILEPSY
     Route: 048
     Dates: start: 20040120
  2. MINIRIN [Suspect]
     Indication: DIABETES INSIPIDUS
     Dosage: .05MG TWICE PER DAY
     Route: 048
  3. HYDROCORTISONE [Concomitant]
     Dosage: 30MG PER DAY
     Route: 048
  4. ASPIRIN [Concomitant]
     Dosage: 160MG PER DAY
     Route: 048
  5. LEVOTHYROXINE SODIUM [Concomitant]
     Dosage: 125MCG PER DAY
     Route: 048

REACTIONS (3)
  - DIABETES INSIPIDUS [None]
  - DRUG INEFFECTIVE [None]
  - DRUG INTERACTION [None]
